FAERS Safety Report 11235515 (Version 1)
Quarter: 2015Q3

REPORT INFORMATION
  Report Type: Spontaneous
  Country: JP (occurrence: JP)
  Receive Date: 20150702
  Receipt Date: 20150702
  Transmission Date: 20151125
  Serious: Yes (Other)
  Sender: FDA-Public Use
  Company Number: JP-APOTEX-2015AP010280

PATIENT

DRUGS (2)
  1. PAXIL CR [Suspect]
     Active Substance: PAROXETINE HYDROCHLORIDE
     Indication: PRODUCT USED FOR UNKNOWN INDICATION
     Dosage: 25 MG, QD
     Route: 048
     Dates: end: 20150614
  2. PAXIL CR [Suspect]
     Active Substance: PAROXETINE HYDROCHLORIDE
     Dosage: 50 MG, QD
     Route: 048
     Dates: start: 20150615

REACTIONS (14)
  - Muscle rigidity [Unknown]
  - Confusional state [Unknown]
  - Diarrhoea [Unknown]
  - Pyrexia [Unknown]
  - Anxiety [Unknown]
  - Hyperkinesia [Unknown]
  - Dyskinesia [Unknown]
  - Hyperhidrosis [Unknown]
  - Insomnia [Unknown]
  - Agitation [Unknown]
  - Tremor [Unknown]
  - Oculogyric crisis [Unknown]
  - Tachycardia [Unknown]
  - Irritability [Unknown]

NARRATIVE: CASE EVENT DATE: 20150615
